FAERS Safety Report 13237815 (Version 1)
Quarter: 2017Q1

REPORT INFORMATION
  Report Type: Spontaneous
  Country: US (occurrence: US)
  Receive Date: 20170215
  Receipt Date: 20170215
  Transmission Date: 20170428
  Serious: Yes (Death, Hospitalization)
  Sender: FDA-Public Use
  Company Number: None

PATIENT
  Age: 28 Year
  Sex: Female
  Weight: 56.8 kg

DRUGS (9)
  1. VINCRISTINE [Suspect]
     Active Substance: VINCRISTINE
     Indication: KAPOSI^S SARCOMA
     Route: 042
     Dates: start: 20161116, end: 20161212
  2. AMOXICILLIN. [Concomitant]
     Active Substance: AMOXICILLIN
  3. PARACETAMOL [Concomitant]
     Active Substance: ACETAMINOPHEN
  4. BLEOMYCIN [Suspect]
     Active Substance: BLEOMYCIN SULFATE
     Indication: KAPOSI^S SARCOMA
     Dosage: DOSAGE AMOUNT - 23.4 UNITS
     Route: 042
     Dates: start: 20161116, end: 20161212
  5. CO-TRIMOXAZOLE (TRIMETHOPRIM/SULFAMETHOXAZOLE) [Concomitant]
  6. AUGMENTIN (AMOXICILLIN/CLAVULANATE) [Concomitant]
  7. EFAVIRENZ/EMTRICITABINE/TENOFOVIR DF [Suspect]
     Active Substance: EFAVIRENZ\EMTRICITABINE\TENOFOVIR DISOPROXIL FUMARATE
     Indication: HIV INFECTION
     Dosage: DOSE AMOUNT - 600/200/300 MG
     Route: 048
     Dates: start: 20161116, end: 20170102
  8. CIPROFLOXACIN. [Concomitant]
     Active Substance: CIPROFLOXACIN
  9. DICLOFENAC [Concomitant]
     Active Substance: DICLOFENAC

REACTIONS (26)
  - Chest pain [None]
  - Drug dose omission [None]
  - Crepitations [None]
  - Respiratory distress [None]
  - Hyporeflexia [None]
  - Hypotension [None]
  - Mucosal dryness [None]
  - Renal failure [None]
  - Bacterial sepsis [None]
  - Encephalopathy [None]
  - Blood glucose increased [None]
  - Neutrophil count increased [None]
  - Hepatorenal failure [None]
  - Oedema peripheral [None]
  - Drug-induced liver injury [None]
  - Abdominal pain [None]
  - Hepatosplenomegaly [None]
  - Hypotonia [None]
  - Multiple organ dysfunction syndrome [None]
  - Pupil fixed [None]
  - Pulse absent [None]
  - Malaria [None]
  - Tachycardia [None]
  - Oral candidiasis [None]
  - Loss of consciousness [None]
  - Anaemia [None]

NARRATIVE: CASE EVENT DATE: 20170103
